APPROVED DRUG PRODUCT: FLAGYL I.V. RTU IN PLASTIC CONTAINER
Active Ingredient: METRONIDAZOLE
Strength: 500MG/100ML
Dosage Form/Route: INJECTABLE;INJECTION
Application: N018353 | Product #002
Applicant: PFIZER INC
Approved: Approved Prior to Jan 1, 1982 | RLD: No | RS: No | Type: DISCN